FAERS Safety Report 24818294 (Version 3)
Quarter: 2025Q3

REPORT INFORMATION
  Report Type: Report from Study
  Country: US (occurrence: US)
  Receive Date: 20250108
  Receipt Date: 20250809
  Transmission Date: 20251020
  Serious: Yes (Other)
  Sender: ALEXION PHARMACEUTICALS
  Company Number: US-AstraZeneca-CH-00778653A

PATIENT
  Age: 66 Year
  Sex: Female

DRUGS (2)
  1. DANICOPAN [Suspect]
     Active Substance: DANICOPAN
     Route: 065
  2. ULTOMIRIS [Suspect]
     Active Substance: RAVULIZUMAB-CWVZ

REACTIONS (1)
  - Thrombocytopenia [Recovered/Resolved]
